FAERS Safety Report 13255753 (Version 1)
Quarter: 2017Q1

REPORT INFORMATION
  Report Type: Spontaneous
  Country: US (occurrence: US)
  Receive Date: 20170218
  Receipt Date: 20170218
  Transmission Date: 20170428
  Serious: Yes (Life-Threatening, Hospitalization)
  Sender: FDA-Public Use
  Company Number: None

PATIENT
  Age: 81 Year
  Sex: Female
  Weight: 67.5 kg

DRUGS (12)
  1. DIGOXIN. [Concomitant]
     Active Substance: DIGOXIN
  2. RENVELA [Concomitant]
     Active Substance: SEVELAMER CARBONATE
  3. LEVOTHYROXINE. [Concomitant]
     Active Substance: LEVOTHYROXINE
  4. MIDODRINE HCL [Concomitant]
     Active Substance: MIDODRINE HYDROCHLORIDE
  5. MEGACE RENAL SOFTGEL [Concomitant]
  6. METHOTREXATE 2.5 MG TABLETS [Suspect]
     Active Substance: METHOTREXATE
     Indication: RHEUMATOID ARTHRITIS
     Dosage: ORAL 2 TABLETS EVERY SUNDAY?
     Route: 048
     Dates: start: 20170101, end: 20170212
  7. SILDENAFIL. [Concomitant]
     Active Substance: SILDENAFIL
  8. PANTOPRAZOLE [Concomitant]
     Active Substance: PANTOPRAZOLE SODIUM
  9. ADVAIR DISKUS [Concomitant]
     Active Substance: FLUTICASONE PROPIONATE\SALMETEROL XINAFOATE
  10. PREDNISONE. [Concomitant]
     Active Substance: PREDNISONE
  11. TAZTIA XT [Concomitant]
     Active Substance: DILTIAZEM HYDROCHLORIDE
  12. DUONEB [Concomitant]
     Active Substance: ALBUTEROL SULFATE\IPRATROPIUM BROMIDE

REACTIONS (8)
  - Dyspnoea [None]
  - Nasopharyngitis [None]
  - Gingival bleeding [None]
  - Interstitial lung disease [None]
  - Liver disorder [None]
  - Plateletcrit decreased [None]
  - Haemoglobin decreased [None]
  - White blood cell count decreased [None]

NARRATIVE: CASE EVENT DATE: 20170208
